FAERS Safety Report 12927635 (Version 1)
Quarter: 2016Q4

REPORT INFORMATION
  Report Type: Spontaneous
  Country: US (occurrence: US)
  Receive Date: 20161109
  Receipt Date: 20161109
  Transmission Date: 20170207
  Serious: Yes (Hospitalization)
  Sender: FDA-Public Use
  Company Number: None

PATIENT
  Age: 46 Year
  Sex: Female
  Weight: 97.3 kg

DRUGS (1)
  1. LISINOPRIL. [Suspect]
     Active Substance: LISINOPRIL
     Indication: HYPERTENSION
     Route: 048
     Dates: start: 20160401, end: 20161009

REACTIONS (4)
  - Swollen tongue [None]
  - Lip swelling [None]
  - Oropharyngeal pain [None]
  - Angioedema [None]

NARRATIVE: CASE EVENT DATE: 20161009
